FAERS Safety Report 25478808 (Version 1)
Quarter: 2025Q2

REPORT INFORMATION
  Report Type: Spontaneous
  Country: JP (occurrence: JP)
  Receive Date: 20250625
  Receipt Date: 20250625
  Transmission Date: 20250716
  Serious: Yes (Other)
  Sender: NOVARTIS
  Company Number: JP-002147023-NVSJ2025JP006550

PATIENT
  Age: 10 Year

DRUGS (3)
  1. CYCLOSPORINE [Interacting]
     Active Substance: CYCLOSPORINE
     Indication: Nephrotic syndrome
     Dosage: 85 MG, BID(5.7 MG/KG)
     Route: 048
  2. CYCLOSPORINE [Interacting]
     Active Substance: CYCLOSPORINE
     Route: 048
  3. PHENOBARBITAL [Interacting]
     Active Substance: PHENOBARBITAL
     Indication: Posterior reversible encephalopathy syndrome
     Route: 065

REACTIONS (3)
  - Posterior reversible encephalopathy syndrome [Unknown]
  - Altered state of consciousness [Unknown]
  - Hypertension [Unknown]
